FAERS Safety Report 13639647 (Version 1)
Quarter: 2017Q2

REPORT INFORMATION
  Report Type: Spontaneous
  Country: US (occurrence: US)
  Receive Date: 20170609
  Receipt Date: 20170609
  Transmission Date: 20170830
  Serious: No
  Sender: FDA-Public Use
  Company Number: US-ROCHE-1013431

PATIENT
  Age: 40 Year
  Sex: Female

DRUGS (4)
  1. ZOLOFT [Suspect]
     Active Substance: SERTRALINE HYDROCHLORIDE
     Indication: PRODUCT USED FOR UNKNOWN INDICATION
     Route: 065
  2. KLONOPIN [Suspect]
     Active Substance: CLONAZEPAM
     Indication: PANIC ATTACK
     Dosage: 2-3 MG PER DAY
     Route: 048
  3. KLONOPIN [Suspect]
     Active Substance: CLONAZEPAM
     Route: 048
  4. KLONOPIN [Suspect]
     Active Substance: CLONAZEPAM
     Route: 048

REACTIONS (14)
  - Depression [Unknown]
  - Emotional disorder [Unknown]
  - Gastric bypass [Recovered/Resolved]
  - Nervousness [Unknown]
  - Thinking abnormal [Unknown]
  - Tension [Unknown]
  - Somnolence [Unknown]
  - Viral upper respiratory tract infection [Unknown]
  - Feeling hot [Unknown]
  - Fatigue [Unknown]
  - Weight decreased [Unknown]
  - Fear [Unknown]
  - Dyskinesia [Unknown]
  - Tremor [Unknown]
